FAERS Safety Report 6730643-1 (Version None)
Quarter: 2010Q2

REPORT INFORMATION
  Report Type: 
  Country: None (occurrence: None)
  Receive Date: 20100518
  Receipt Date: 20100505
  Transmission Date: 20101027
  Serious: No
  Sender: FDA-Public Use
  Company Number: US-ELI_LILLY_AND_COMPANY-US201005002612

PATIENT
  Sex: Male

DRUGS (3)
  1. ADCIRCA [Suspect]
     Indication: PULMONARY HYPERTENSION
     Dosage: 40 MG, EACH MORNING
     Dates: start: 20100503
  2. OXYCONTIN [Concomitant]
     Indication: PAIN
     Dosage: 40 MG, EACH MORNING
  3. TRACLEER [Concomitant]

REACTIONS (3)
  - HEADACHE [None]
  - NASAL CONGESTION [None]
  - VISUAL IMPAIRMENT [None]
